FAERS Safety Report 24194932 (Version 2)
Quarter: 2024Q3

REPORT INFORMATION
  Report Type: Spontaneous
  Country: IT (occurrence: None)
  Receive Date: 20240809
  Receipt Date: 20240815
  Transmission Date: 20241017
  Serious: Yes (Life-Threatening)
  Sender: ASTRAZENECA
  Company Number: 2024A180350

PATIENT
  Age: 49 Year
  Sex: Female
  Weight: 45 kg

DRUGS (1)
  1. SAPHNELO [Suspect]
     Active Substance: ANIFROLUMAB-FNIA
     Indication: Systemic lupus erythematosus
     Route: 042
     Dates: start: 202308, end: 202406

REACTIONS (3)
  - Intestinal angina [Recovered/Resolved]
  - Coeliac artery occlusion [Recovered/Resolved]
  - Mesenteric arterial occlusion [Recovered/Resolved]

NARRATIVE: CASE EVENT DATE: 20240101
